FAERS Safety Report 24955008 (Version 1)
Quarter: 2025Q1

REPORT INFORMATION
  Report Type: Spontaneous
  Country: GB (occurrence: GB)
  Receive Date: 20250211
  Receipt Date: 20250211
  Transmission Date: 20250408
  Serious: Yes (Other)
  Sender: ACCORD
  Company Number: None

PATIENT
  Age: 50 Year
  Sex: Male
  Weight: 112 kg

DRUGS (16)
  1. MONTELUKAST [Suspect]
     Active Substance: MONTELUKAST
     Indication: Ill-defined disorder
     Dosage: STRENGTH: 10MG, AT NIGHT
     Dates: start: 20250109
  2. BECLOMETHASONE\FORMOTEROL [Concomitant]
     Active Substance: BECLOMETHASONE\FORMOTEROL
     Indication: Ill-defined disorder
     Dates: start: 20250109
  3. AMOXICILLIN [Concomitant]
     Active Substance: AMOXICILLIN
     Indication: Ill-defined disorder
     Dates: start: 20241105, end: 20241110
  4. PREDNISOLONE [Concomitant]
     Active Substance: PREDNISOLONE
     Indication: Ill-defined disorder
     Dates: start: 20241105, end: 20241110
  5. MONTELUKAST [Concomitant]
     Active Substance: MONTELUKAST
     Indication: Ill-defined disorder
     Dates: start: 20250109
  6. BACLOFEN [Concomitant]
     Active Substance: BACLOFEN
     Indication: Ill-defined disorder
     Dates: start: 20240311
  7. CARBOCYSTEINE [Concomitant]
     Active Substance: CARBOCYSTEINE
     Indication: Ill-defined disorder
     Dates: start: 20240311
  8. COCODAMOL [Concomitant]
     Active Substance: ACETAMINOPHEN\CODEINE PHOSPHATE
     Indication: Ill-defined disorder
     Dates: start: 20240311
  9. LANSOPRAZOLE [Concomitant]
     Active Substance: LANSOPRAZOLE
     Indication: Ill-defined disorder
     Dates: start: 20240311
  10. LINAGLIPTIN [Concomitant]
     Active Substance: LINAGLIPTIN
     Indication: Ill-defined disorder
     Dates: start: 20240311
  11. METFORMIN [Concomitant]
     Active Substance: METFORMIN HYDROCHLORIDE
     Indication: Ill-defined disorder
     Dates: start: 20240311
  12. QUININE SULFATE [Concomitant]
     Active Substance: QUININE SULFATE
     Indication: Ill-defined disorder
     Dates: start: 20240311
  13. ALBUTEROL [Concomitant]
     Active Substance: ALBUTEROL
     Indication: Ill-defined disorder
     Dates: start: 20240311
  14. SILDENAFIL [Concomitant]
     Active Substance: SILDENAFIL
     Indication: Ill-defined disorder
     Dates: start: 20240311
  15. ATROVENT [Concomitant]
     Active Substance: IPRATROPIUM BROMIDE
     Indication: Ill-defined disorder
     Dates: start: 20240910
  16. VENTOLIN [Concomitant]
     Active Substance: ALBUTEROL SULFATE
     Indication: Ill-defined disorder
     Dates: start: 20240910

REACTIONS (2)
  - Aggression [Unknown]
  - Neuropsychiatric syndrome [Recovered/Resolved]
